FAERS Safety Report 7472567-0 (Version None)
Quarter: 2011Q2

REPORT INFORMATION
  Report Type: 
  Country: None (occurrence: None)
  Receive Date: 20110511
  Receipt Date: 20110426
  Transmission Date: 20111010
  Serious: No
  Sender: FDA-Public Use
  Company Number: US-B.I. PHARMACEUTICALS,INC./RIDGEFIELD-2011-BP-11859BP

PATIENT
  Age: 82 Year
  Sex: Female

DRUGS (11)
  1. SPIRIVA [Suspect]
     Indication: CHRONIC OBSTRUCTIVE PULMONARY DISEASE
     Dosage: 18 MCG
     Route: 055
     Dates: start: 20110301
  2. ALPRAZOLAM [Suspect]
  3. FUROSEMIDE [Concomitant]
     Indication: FLUID RETENTION
     Dosage: 20 MG
  4. OMEPRAZOLE [Concomitant]
     Indication: ABDOMINAL DISCOMFORT
     Dosage: 20 MG
  5. ASPIRIN [Concomitant]
     Indication: CARDIAC DISORDER
     Dosage: 81 MG
  6. ACETAMINOPHEN [Concomitant]
     Indication: ARTHRITIS
  7. LISINOPRIL [Concomitant]
     Indication: HYPERTENSION
     Dosage: 10 MG
  8. VITAMIN E [Concomitant]
     Indication: SUPPLEMENTATION THERAPY
  9. SENNOSIDE [Concomitant]
     Indication: CONSTIPATION
  10. AMLODIPINE BESYLATE [Concomitant]
     Indication: CARDIAC DISORDER
     Dosage: 10 MG
  11. ONE A DAY VITAMIN [Concomitant]
     Indication: SUPPLEMENTATION THERAPY

REACTIONS (4)
  - STRESS [None]
  - OEDEMA PERIPHERAL [None]
  - LIMB INJURY [None]
  - JOINT SWELLING [None]
